FAERS Safety Report 5485257-0 (Version None)
Quarter: 2007Q4

REPORT INFORMATION
  Report Type: 
  Country: None (occurrence: None)
  Receive Date: 20071010
  Receipt Date: 20071010
  Transmission Date: 20080405
  Serious: Yes (Other)
  Sender: FDA-Public Use
  Company Number: None

PATIENT
  Age: 23 Year
  Sex: Female
  Weight: 61.2356 kg

DRUGS (1)
  1. MICROGESTIN 1.5/30 [Suspect]
     Dosage: BUCCAL
     Route: 002
     Dates: start: 20051115, end: 20061001

REACTIONS (1)
  - ALOPECIA [None]
